FAERS Safety Report 6735748-7 (Version None)
Quarter: 2010Q2

REPORT INFORMATION
  Report Type: 
  Country: None (occurrence: None)
  Receive Date: 20100521
  Receipt Date: 20100513
  Transmission Date: 20101027
  Serious: Yes (Hospitalization)
  Sender: FDA-Public Use
  Company Number: A0789319A

PATIENT
  Age: 56 Year
  Sex: Male

DRUGS (2)
  1. AVANDIA [Suspect]
     Indication: DIABETES MELLITUS
     Dosage: 4U TWICE PER DAY
     Route: 048
     Dates: start: 20050625, end: 20060127
  2. AVANDAMET [Suspect]
     Indication: DIABETES MELLITUS
     Dates: start: 20040416, end: 20050625

REACTIONS (1)
  - MYOCARDIAL INFARCTION [None]
